FAERS Safety Report 5728879-1 (Version None)
Quarter: 2008Q2

REPORT INFORMATION
  Report Type: 
  Country: None (occurrence: None)
  Receive Date: 20080506
  Receipt Date: 20080428
  Transmission Date: 20081010
  Serious: Yes (Disabling)
  Sender: FDA-Public Use
  Company Number: DK-ASTRAZENECA-2008SE01687

PATIENT
  Sex: Female
  Weight: 52 kg

DRUGS (2)
  1. SEROQUEL [Suspect]
     Indication: ASPERGER'S DISORDER
     Dosage: 100 MG FOUR TIMES DAILY + 200 MG AS NEEDED
     Route: 048
  2. TRANSFUSIONS [Concomitant]

REACTIONS (1)
  - ANAEMIA [None]
